FAERS Safety Report 7219587-9 (Version None)
Quarter: 2011Q1

REPORT INFORMATION
  Report Type: 
  Country: None (occurrence: None)
  Receive Date: 20110111
  Receipt Date: 20110106
  Transmission Date: 20110831
  Serious: Yes (Death, Hospitalization)
  Sender: FDA-Public Use
  Company Number: BR-ELI_LILLY_AND_COMPANY-BR201005003517

PATIENT
  Sex: Female
  Weight: 45.7 kg

DRUGS (7)
  1. VITAMIN B-12 [Concomitant]
     Indication: SUPPLEMENTATION THERAPY
     Dosage: 1000 IU, UNKNOWN
     Route: 042
     Dates: start: 20090217
  2. FOLIC ACID [Concomitant]
     Indication: SUPPLEMENTATION THERAPY
     Dosage: 350 MG, UNKNOWN
     Route: 048
     Dates: start: 20090402
  3. DEXAMETHASONE [Concomitant]
     Indication: SUPPLEMENTATION THERAPY
     Dosage: 8 MG, UNKNOWN
     Route: 048
     Dates: start: 20090401, end: 20090403
  4. CARBOPLATIN [Suspect]
     Indication: LUNG NEOPLASM MALIGNANT
     Dosage: 565 MG, QOD
     Route: 042
     Dates: start: 20090312, end: 20090402
  5. DEXAMETHASONE [Concomitant]
     Dosage: 24 MG, DAILY (1/D)
     Route: 065
     Dates: start: 20090409, end: 20090412
  6. MORPHINE [Concomitant]
     Dosage: 12 MG, DAILY (1/D)
     Route: 065
     Dates: start: 20090409, end: 20090412
  7. PEMETREXED [Suspect]
     Indication: LUNG NEOPLASM MALIGNANT
     Dosage: 710 MG, OTHER
     Route: 042
     Dates: start: 20090312, end: 20090402

REACTIONS (1)
  - PNEUMONIA [None]
